FAERS Safety Report 17855687 (Version 2)
Quarter: 2021Q1

REPORT INFORMATION
  Report Type: Spontaneous
  Country: US (occurrence: US)
  Receive Date: 20200603
  Receipt Date: 20210329
  Transmission Date: 20210419
  Serious: Yes (Other)
  Sender: FDA-Public Use
  Company Number: US-PFIZER INC-2019289841

PATIENT
  Age: 72 Year
  Sex: Female
  Weight: 70.03 kg

DRUGS (7)
  1. B50 [Concomitant]
     Dosage: UNK
  2. ZYRTEC [Concomitant]
     Active Substance: CETIRIZINE HYDROCHLORIDE
     Indication: HYPERSENSITIVITY
     Dosage: UNK
  3. PRIMROSE [Concomitant]
     Dosage: UNK
  4. ALPHA LIPOIC ACID [Concomitant]
     Active Substance: .ALPHA.-LIPOIC ACID
     Indication: NEUROPATHY PERIPHERAL
     Dosage: UNK
  5. LETROZOLE. [Concomitant]
     Active Substance: LETROZOLE
     Dosage: 2.5 MG, 1X/DAY
     Dates: start: 2017
  6. FASLODEX [Concomitant]
     Active Substance: FULVESTRANT
     Dosage: A BIG SHOT ONE IN EACH HIP MONTHLY
     Dates: end: 2017
  7. IBRANCE [Suspect]
     Active Substance: PALBOCICLIB
     Indication: BREAST CANCER FEMALE
     Dosage: 125 MG, CYCLIC (IN THE AM WITH BREAKFAST, 21 DAYS PER PACKAGE)
     Dates: start: 2016, end: 20210211

REACTIONS (1)
  - Cataract [Unknown]

NARRATIVE: CASE EVENT DATE: 202012
